FAERS Safety Report 5698297-3 (Version None)
Quarter: 2008Q2

REPORT INFORMATION
  Report Type: 
  Country: None (occurrence: None)
  Receive Date: 20080408
  Receipt Date: 20080401
  Transmission Date: 20081010
  Serious: Yes (Other)
  Sender: FDA-Public Use
  Company Number: US-BOEHRINGER INGELHEIM GMBH, GERMANY-2008-DE-01933GD

PATIENT
  Sex: Female

DRUGS (2)
  1. CLONIDINE HCL [Suspect]
     Indication: TOURETTE'S DISORDER
  2. ANTIPSYCHOTIC DRUGS [Suspect]
     Indication: TOURETTE'S DISORDER

REACTIONS (2)
  - ABNORMAL BEHAVIOUR [None]
  - DRUG INEFFECTIVE [None]
